FAERS Safety Report 7067095-0 (Version None)
Quarter: 2010Q4

REPORT INFORMATION
  Report Type: 
  Country: None (occurrence: None)
  Receive Date: 20101028
  Receipt Date: 20101018
  Transmission Date: 20110411
  Serious: No
  Sender: FDA-Public Use
  Company Number: US-BIOGENIDEC-2010BI036844

PATIENT
  Sex: Female

DRUGS (8)
  1. TYSABRI [Suspect]
     Indication: MULTIPLE SCLEROSIS
     Route: 042
  2. AVONEX [Concomitant]
     Indication: MULTIPLE SCLEROSIS
     Route: 030
     Dates: start: 19960101
  3. AVONEX [Concomitant]
     Route: 030
     Dates: start: 20050101
  4. AVONEX [Concomitant]
     Route: 030
  5. BETASERON [Concomitant]
     Indication: MULTIPLE SCLEROSIS
  6. COPAXONE [Concomitant]
     Indication: MULTIPLE SCLEROSIS
  7. MEDICATION (NOS) [Concomitant]
     Indication: MULTIPLE SCLEROSIS
  8. SOLU-MEDROL [Concomitant]
     Indication: MULTIPLE SCLEROSIS
     Dates: start: 20060101

REACTIONS (2)
  - ABDOMINAL DISCOMFORT [None]
  - APHAGIA [None]
